FAERS Safety Report 9249132 (Version 2)
Quarter: 2013Q2

REPORT INFORMATION
  Report Type: Spontaneous
  Country: US (occurrence: US)
  Receive Date: 20130423
  Receipt Date: 20130612
  Transmission Date: 20140414
  Serious: Yes (Other)
  Sender: FDA-Public Use
  Company Number: US-BRISTOL-MYERS SQUIBB COMPANY-18782979

PATIENT
  Age: 74 Year
  Sex: Female
  Weight: 66.66 kg

DRUGS (9)
  1. WARFARIN SODIUM [Suspect]
     Indication: PULMONARY THROMBOSIS
     Dosage: STARTED AT 4 MG
  2. WARFARIN SODIUM [Suspect]
     Indication: THROMBOSIS
     Dosage: STARTED AT 4 MG
  3. CLARITIN [Concomitant]
  4. PRILOSEC [Concomitant]
  5. LEVOTHYROXINE [Concomitant]
  6. FAMOTIDINE [Concomitant]
  7. ACETAMINOPHEN [Concomitant]
  8. MELOXICAM [Concomitant]
  9. MELATONIN [Concomitant]

REACTIONS (7)
  - Blood pressure increased [Unknown]
  - Feeling abnormal [Unknown]
  - Vision blurred [Unknown]
  - Malaise [Unknown]
  - Headache [Unknown]
  - Hypoaesthesia oral [Unknown]
  - Balance disorder [Unknown]
